FAERS Safety Report 9361620 (Version 2)
Quarter: 2013Q3

REPORT INFORMATION
  Report Type: Report from Study
  Country: US (occurrence: US)
  Receive Date: 20130621
  Receipt Date: 20130925
  Transmission Date: 20140515
  Serious: Yes (Hospitalization, Other)
  Sender: FDA-Public Use
  Company Number: US-GILEAD-2013-0077415

PATIENT
  Age: 68 Year
  Sex: Female

DRUGS (14)
  1. AMBRISENTAN [Suspect]
     Indication: PULMONARY ARTERIAL HYPERTENSION
     Dosage: 5 MG, QD
     Dates: start: 20101018
  2. TYVASO [Suspect]
     Indication: PULMONARY ARTERIAL HYPERTENSION
     Dosage: 216 ?G, UNK
     Dates: start: 20101118
  3. ADVAIR [Concomitant]
     Indication: PULMONARY ARTERIAL HYPERTENSION
     Dosage: UNK
     Dates: start: 20101117
  4. ARAVA [Concomitant]
     Indication: RHEUMATOID ARTHRITIS
     Dosage: UNK
     Dates: start: 20100812
  5. OMEPRAZOLE [Concomitant]
     Indication: GASTROOESOPHAGEAL REFLUX DISEASE
     Dosage: UNK
     Dates: start: 20100812
  6. PREDNISONE [Concomitant]
     Indication: RHEUMATOID ARTHRITIS
     Dosage: UNK
     Dates: start: 20110501
  7. VICODIN [Concomitant]
     Indication: ARTHRALGIA
     Dosage: UNK
     Dates: start: 20100812
  8. ASPIRIN [Concomitant]
     Indication: PULMONARY ARTERIAL HYPERTENSION
     Dosage: UNK
     Dates: start: 20101014
  9. SPIRIVA [Concomitant]
     Indication: CHRONIC OBSTRUCTIVE PULMONARY DISEASE
     Dosage: UNK
  10. VESICARE [Concomitant]
     Indication: URINARY INCONTINENCE
     Dosage: UNK
  11. CALCIUM 600 + D [Concomitant]
  12. MULTIVITAMIN                       /00097801/ [Concomitant]
  13. VITAMIN C                          /00008001/ [Concomitant]
  14. VITAMIN D NOS [Concomitant]

REACTIONS (1)
  - Pneumonia [Recovered/Resolved]
